FAERS Safety Report 8612228-5 (Version None)
Quarter: 2012Q3

REPORT INFORMATION
  Report Type: 
  Country: None (occurrence: None)
  Receive Date: 20120813
  Receipt Date: 20120813
  Transmission Date: 20120928
  Serious: Yes (Other)
  Sender: FDA-Public Use
  Company Number: None

PATIENT
  Age: 36 Year
  Sex: Female

DRUGS (1)
  1. CREST PRO HEALTH CPC ANTIGINGIV 0.1% CETYLPRYRIDINIUM CREST [Suspect]

REACTIONS (1)
  - STOMATITIS [None]
